FAERS Safety Report 5511687-4 (Version None)
Quarter: 2007Q4

REPORT INFORMATION
  Report Type: 
  Country: None (occurrence: None)
  Receive Date: 20071109
  Receipt Date: 20071105
  Transmission Date: 20080405
  Serious: Yes (Hospitalization)
  Sender: FDA-Public Use
  Company Number: FR-ASTRAZENECA-2007CG01437

PATIENT
  Age: 23523 Day
  Sex: Female

DRUGS (1)
  1. MOPRAL [Suspect]
     Indication: ABDOMINAL PAIN UPPER
     Route: 048

REACTIONS (2)
  - ERYTHEMA NODOSUM [None]
  - PYREXIA [None]
